FAERS Safety Report 13582023 (Version 1)
Quarter: 2017Q2

REPORT INFORMATION
  Report Type: Report from Study
  Country: BR (occurrence: BR)
  Receive Date: 20170525
  Receipt Date: 20170525
  Transmission Date: 20170830
  Serious: Yes (Death, Life-Threatening, Hospitalization, Other)
  Sender: FDA-Public Use
  Company Number: PHHY2017BR076885

PATIENT
  Sex: Female
  Weight: 90 kg

DRUGS (2)
  1. EXELON PATCH [Suspect]
     Active Substance: RIVASTIGMINE
     Dosage: 9.5 MG, QD PATCH 10 CM2
     Route: 062
  2. EXELON PATCH [Suspect]
     Active Substance: RIVASTIGMINE
     Indication: DEMENTIA ALZHEIMER^S TYPE
     Dosage: 4.6 MG, PATCH 5 CM2 (MORE THAN 8 YEARS AGO)
     Route: 062

REACTIONS (12)
  - Lung disorder [Unknown]
  - Hallucination [Unknown]
  - Fall [Unknown]
  - Upper limb fracture [Unknown]
  - Cardiac disorder [Unknown]
  - Cerebrovascular accident [Unknown]
  - Malaise [Unknown]
  - Daydreaming [Unknown]
  - Anxiety [Unknown]
  - Death [Fatal]
  - Nightmare [Unknown]
  - Obesity [Unknown]
